FAERS Safety Report 9479625 (Version 2)
Quarter: 2013Q3

REPORT INFORMATION
  Report Type: Report from Study
  Country: AU (occurrence: AU)
  Receive Date: 20130827
  Receipt Date: 20130827
  Transmission Date: 20140515
  Serious: Yes (Other)
  Sender: FDA-Public Use
  Company Number: PHHY2013AU074958

PATIENT
  Age: 76 Year
  Sex: Female

DRUGS (30)
  1. ACLASTA [Suspect]
     Dosage: 5 MG PER 100 ML
     Route: 042
     Dates: start: 20090522
  2. ACLASTA [Suspect]
     Dosage: 5 MG PER 100 ML
     Route: 042
     Dates: start: 20100519
  3. ACLASTA [Suspect]
     Dosage: 5 MG PER 100 ML
     Route: 042
     Dates: start: 20110524
  4. ACLASTA [Suspect]
     Dosage: 5 MG PER 100 ML
     Route: 042
     Dates: start: 20120614
  5. ENDEP [Concomitant]
     Dosage: 50 MG, 1 BEFOR BED
  6. ENDONE [Concomitant]
     Dosage: 5 MG, PRN
  7. FEFOL SPANSULE [Concomitant]
     Dosage: UNK (270 MG/ 300MCG)
  8. FRUSEMIDE [Concomitant]
     Dosage: 20 MG, 1 IN THE MORNING
  9. HYDROXO B12 [Concomitant]
     Dosage: 1 MG/ML, PRN/ / 1 AS DIRECTED
  10. IMIGRAN [Concomitant]
     Dosage: 50 MG, PRN
  11. IMOVANE [Concomitant]
     Dosage: 7.5 MG, PRN
  12. INDERAL [Concomitant]
     Dosage: 10 MG, BID
  13. INDERAL [Concomitant]
     Dosage: 40 MG, 0.5 TWICE A DAY
  14. LEUCOVORIN CALCIUM [Concomitant]
     Dosage: 15 MG/ ONCE A WEEK AS DIRECTED
  15. NEXIUM [Concomitant]
     Dosage: 20 MG, BID
  16. NORSPAN [Concomitant]
     Dosage: 10 UG/HR/ ONCE A WEEK
     Route: 062
  17. NORSPAN [Concomitant]
     Dosage: 5 UG/HR/ ONCE A WEEK
     Route: 062
  18. OXYCONTIN [Concomitant]
     Dosage: 10 MG, 1 TWICE A DAY
  19. OXYCONTIN [Concomitant]
     Dosage: 40 MG/ 1 TWICE A DAY
  20. PILOCARPINE [Concomitant]
     Dosage: UNK
  21. PLAQUENIL [Concomitant]
     Dosage: 200 MG/ 1 TWICE A DAY
  22. PREDNISONE [Concomitant]
     Dosage: 5 MG, AS DIRECTED
  23. ROZEX [Concomitant]
     Dosage: UNK, PRN, 0.75 %
  24. SERETIDE [Concomitant]
     Dosage: UNK , TWICE A DAY/ MDI 250/25
  25. TRAMAL [Concomitant]
     Dosage: 100 MG, BID
  26. VENTOLIN [Concomitant]
     Dosage: 100 UG, PRN/  2 EVERY 4 HOURS
  27. WARFARIN [Concomitant]
     Dosage: 1 MG/ 1 IN EVENING AS DIRECTED
  28. WARFARIN [Concomitant]
     Dosage: 2 MG, 1 DAILY
  29. WARFARIN [Concomitant]
     Dosage: 5 MG, 1 IN EVENING AS DIRECTED
  30. ZANTAC [Concomitant]
     Dosage: 150 MG, 1 IN THE EVENING

REACTIONS (11)
  - Asthma [Unknown]
  - Hyperlipidaemia [Unknown]
  - Anaemia of chronic disease [Unknown]
  - Rosacea [Unknown]
  - Gastrooesophageal reflux disease [Unknown]
  - Blood lactate dehydrogenase increased [Unknown]
  - Blood alkaline phosphatase increased [Unknown]
  - Pain [Unknown]
  - Insomnia [Unknown]
  - Blood creatinine increased [Unknown]
  - Glomerular filtration rate decreased [Unknown]
